FAERS Safety Report 14301435 (Version 2)
Quarter: 2017Q4

REPORT INFORMATION
  Report Type: Report from Study
  Country: DE (occurrence: DE)
  Receive Date: 20171219
  Receipt Date: 20171229
  Transmission Date: 20180321
  Serious: Yes (Death)
  Sender: FDA-Public Use
  Company Number: DE-TEVA-2017-DE-833918

PATIENT

DRUGS (1)
  1. FENTANYL. [Suspect]
     Active Substance: FENTANYL
     Route: 055

REACTIONS (4)
  - Drug abuse [Fatal]
  - Overdose [Unknown]
  - Intentional product use issue [Unknown]
  - Toxicity to various agents [Fatal]
